FAERS Safety Report 7852007-X (Version None)
Quarter: 2011Q4

REPORT INFORMATION
  Report Type: 
  Country: None (occurrence: None)
  Receive Date: 20111026
  Receipt Date: 20111017
  Transmission Date: 20120403
  Serious: Yes (Other)
  Sender: FDA-Public Use
  Company Number: US-ASTRAZENECA-2011SE54616

PATIENT
  Age: 19511 Day
  Sex: Female

DRUGS (5)
  1. CRESTOR [Concomitant]
     Indication: HYPERLIPIDAEMIA
     Route: 048
  2. SEROQUEL XR [Suspect]
     Indication: MAJOR DEPRESSION
     Dosage: TITRATION
     Route: 048
     Dates: start: 20110908, end: 20110912
  3. CYMBALTA [Concomitant]
     Indication: MAJOR DEPRESSION
     Route: 048
  4. ZEITA [Concomitant]
     Indication: HYPERLIPIDAEMIA
     Route: 048
  5. LISINOPRIL [Concomitant]
     Indication: HYPERTENSION
     Route: 048

REACTIONS (8)
  - DIZZINESS [None]
  - NAUSEA [None]
  - ABDOMINAL DISTENSION [None]
  - MALAISE [None]
  - OEDEMA [None]
  - DYSPNOEA [None]
  - LOCAL SWELLING [None]
  - PAIN [None]
